FAERS Safety Report 9474539 (Version 1)
Quarter: 2013Q3

REPORT INFORMATION
  Report Type: Spontaneous
  Country: US (occurrence: US)
  Receive Date: 20130823
  Receipt Date: 20130823
  Transmission Date: 20140515
  Serious: Yes (Other)
  Sender: FDA-Public Use
  Company Number: US-BAYER-2013-101924

PATIENT
  Sex: Male

DRUGS (1)
  1. BACTINE PAIN RELIEVING CLEANSING ANESTHETIC SPRAY [Suspect]

REACTIONS (2)
  - Chemical burns of eye [None]
  - Intentional drug misuse [None]
